FAERS Safety Report 8560061-5 (Version None)
Quarter: 2012Q3

REPORT INFORMATION
  Report Type: 
  Country: None (occurrence: None)
  Receive Date: 20120723
  Receipt Date: 20120702
  Transmission Date: 20120928
  Serious: Yes (Other)
  Sender: FDA-Public Use
  Company Number: EUS-2012-00479

PATIENT
  Age: 15 Year
  Sex: Female

DRUGS (4)
  1. ASPARAGINASE (UNSPECIFIED) (ASPARAGINASE) (UNKNOWN) [Suspect]
     Indication: ACUTE LYMPHOCYTIC LEUKAEMIA
  2. METHOTREXATE [Concomitant]
  3. VINCRISTINE [Concomitant]
  4. DEXAMETHASONE [Concomitant]

REACTIONS (2)
  - ACUTE LYMPHOCYTIC LEUKAEMIA RECURRENT [None]
  - HYPERLIPIDAEMIA [None]
